FAERS Safety Report 7232622-7 (Version None)
Quarter: 2011Q1

REPORT INFORMATION
  Report Type: 
  Country: None (occurrence: None)
  Receive Date: 20110107
  Receipt Date: 20101202
  Transmission Date: 20110831
  Serious: Yes (Other)
  Sender: FDA-Public Use
  Company Number: CA-1184536

PATIENT

DRUGS (1)
  1. NEVANAC [Suspect]
     Dosage: OPHTHALMIC
     Route: 047

REACTIONS (2)
  - POST PROCEDURAL COMPLICATION [None]
  - CORNEAL DECOMPENSATION [None]
